FAERS Safety Report 24592459 (Version 1)
Quarter: 2024Q4

REPORT INFORMATION
  Report Type: Spontaneous
  Country: US (occurrence: US)
  Receive Date: 20241108
  Receipt Date: 20241108
  Transmission Date: 20250115
  Serious: No
  Sender: GLAXOSMITHKLINE
  Company Number: US-GSK-US2024133221

PATIENT
  Age: 28 Year
  Sex: Male

DRUGS (1)
  1. NUCALA [Suspect]
     Active Substance: MEPOLIZUMAB
     Indication: Drug reaction with eosinophilia and systemic symptoms
     Dosage: UNK

REACTIONS (2)
  - Drug effective for unapproved indication [Recovered/Resolved]
  - Off label use [Unknown]
